FAERS Safety Report 4372240-1 (Version None)
Quarter: 2004Q2

REPORT INFORMATION
  Report Type: 
  Country: None (occurrence: None)
  Receive Date: 20040602
  Receipt Date: 20040521
  Transmission Date: 20050107
  Serious: Yes (Other)
  Sender: FDA-Public Use
  Company Number: IE-JNJFOC-20040504612

PATIENT

DRUGS (2)
  1. REMICADE [Suspect]
     Dosage: INTRAVENOUS
     Route: 042
  2. HUMIRA [Suspect]

REACTIONS (3)
  - DRUG INTERACTION [None]
  - LUNG NEOPLASM MALIGNANT [None]
  - PANCREATIC CARCINOMA [None]
